FAERS Safety Report 8026247-3 (Version None)
Quarter: 2012Q1

REPORT INFORMATION
  Report Type: 
  Country: None (occurrence: None)
  Receive Date: 20120105
  Receipt Date: 20110314
  Transmission Date: 20120608
  Serious: No
  Sender: FDA-Public Use
  Company Number: US-ABBOTT-11P-163-0711992-00

PATIENT
  Sex: Male
  Weight: 113.5 kg

DRUGS (8)
  1. SYNTHROID [Suspect]
     Indication: HYPOTHYROIDISM
  2. SYNTHROID [Suspect]
     Indication: HYPOTHYROIDISM
  3. UNKNOWN MEDICATION [Concomitant]
     Indication: HYPERTENSION
  4. NITROGLYCERIN [Concomitant]
     Indication: CHEST PAIN
     Route: 060
  5. CRESTOR [Concomitant]
     Indication: BLOOD CHOLESTEROL INCREASED
  6. SYNTHROID [Suspect]
     Indication: HYPOTHYROIDISM
     Dates: start: 20100601
  7. PLAVIX [Concomitant]
     Indication: PRODUCT USED FOR UNKNOWN INDICATION
  8. UNKNOWN MEDICATION [Concomitant]
     Indication: DIABETES MELLITUS

REACTIONS (4)
  - DYSPNOEA [None]
  - PARAESTHESIA [None]
  - HYPOAESTHESIA [None]
  - FATIGUE [None]
